FAERS Safety Report 13254775 (Version 1)
Quarter: 2017Q1

REPORT INFORMATION
  Report Type: Spontaneous
  Country: US (occurrence: US)
  Receive Date: 20170221
  Receipt Date: 20170221
  Transmission Date: 20170428
  Serious: No
  Sender: FDA-Public Use
  Company Number: US-PFIZER INC-2017066228

PATIENT
  Sex: Female

DRUGS (1)
  1. XELJANZ [Suspect]
     Active Substance: TOFACITINIB CITRATE
     Indication: ARTHRITIS
     Dosage: 5 MG, UNK

REACTIONS (16)
  - Swelling [Unknown]
  - Joint crepitation [Unknown]
  - Pain [Unknown]
  - Arthritis [Unknown]
  - Meniscus injury [Unknown]
  - Rash [Unknown]
  - Condition aggravated [Unknown]
  - Arthralgia [Unknown]
  - Blood cholesterol increased [Unknown]
  - Flank pain [Unknown]
  - Fluid retention [Unknown]
  - Muscle spasms [Unknown]
  - Joint range of motion decreased [Unknown]
  - Herpes zoster [Unknown]
  - Tenderness [Unknown]
  - Blood pressure abnormal [Unknown]
